FAERS Safety Report 25050947 (Version 1)
Quarter: 2025Q1

REPORT INFORMATION
  Report Type: Spontaneous
  Country: PT (occurrence: PT)
  Receive Date: 20250307
  Receipt Date: 20250307
  Transmission Date: 20250408
  Serious: Yes (Other)
  Sender: PFIZER
  Company Number: PT-PFIZER INC-PV202500027336

PATIENT
  Age: 54 Year
  Sex: Female

DRUGS (1)
  1. SULFASALAZINE [Suspect]
     Active Substance: SULFASALAZINE

REACTIONS (4)
  - Accidental exposure to product [Unknown]
  - Exposure via mucosa [Unknown]
  - Angioedema [Unknown]
  - Cross sensitivity reaction [Unknown]
